FAERS Safety Report 5990862-9 (Version None)
Quarter: 2008Q4

REPORT INFORMATION
  Report Type: 
  Country: None (occurrence: None)
  Receive Date: 20081211
  Receipt Date: 20081201
  Transmission Date: 20090506
  Serious: Yes (Death, Hospitalization)
  Sender: FDA-Public Use
  Company Number: HU-PFIZER INC-2008101539

PATIENT

DRUGS (9)
  1. BLINDED *PLACEBO [Suspect]
     Indication: NON-SMALL CELL LUNG CANCER
     Route: 048
     Dates: start: 20081022, end: 20081125
  2. BLINDED SUNITINIB MALATE [Suspect]
     Indication: NON-SMALL CELL LUNG CANCER
     Route: 048
     Dates: start: 20081022, end: 20081125
  3. ERLOTINIB [Suspect]
     Indication: NON-SMALL CELL LUNG CANCER
     Route: 048
     Dates: start: 20081022, end: 20081125
  4. FAMOTIDINE [Concomitant]
     Route: 048
     Dates: start: 20060101, end: 20081125
  5. METOPROLOL [Concomitant]
     Route: 048
     Dates: start: 20060101, end: 20081125
  6. TRAMADOL HCL [Concomitant]
     Route: 048
     Dates: start: 20080930, end: 20081125
  7. MORPHINE [Concomitant]
     Route: 030
     Dates: start: 20081112, end: 20081125
  8. DISODIUM CLODRONATE TETRAHYDRATE [Concomitant]
     Route: 048
     Dates: start: 20080930, end: 20081112
  9. HYDROMORPHONE HCL [Concomitant]
     Route: 048
     Dates: start: 20081001, end: 20081112

REACTIONS (2)
  - CARDIOPULMONARY FAILURE [None]
  - VOMITING [None]
